FAERS Safety Report 6748700-2 (Version None)
Quarter: 2010Q2

REPORT INFORMATION
  Report Type: 
  Country: None (occurrence: None)
  Receive Date: 20100601
  Receipt Date: 20100517
  Transmission Date: 20101027
  Serious: Yes (Hospitalization)
  Sender: FDA-Public Use
  Company Number: PHHY2010CN32770

PATIENT
  Age: 17 Year
  Sex: Female

DRUGS (1)
  1. CARBAMAZEPINE [Suspect]
     Indication: CONVULSION
     Route: 048

REACTIONS (20)
  - ABDOMINAL TENDERNESS [None]
  - BREATH SOUNDS ABNORMAL [None]
  - CONJUNCTIVAL EROSION [None]
  - COUGH [None]
  - DERMATITIS EXFOLIATIVE [None]
  - DRUG ERUPTION [None]
  - DYSKINESIA [None]
  - EFFUSION [None]
  - ERYTHEMA [None]
  - ERYTHEMA OF EYELID [None]
  - EYELID OEDEMA [None]
  - HEART RATE INCREASED [None]
  - INFLAMMATION [None]
  - MUCOSAL NECROSIS [None]
  - ORAL HERPES [None]
  - ORAL MUCOSA EROSION [None]
  - OROPHARYNGEAL PAIN [None]
  - PRODUCTIVE COUGH [None]
  - RASH GENERALISED [None]
  - SWELLING [None]
